FAERS Safety Report 4805327-7 (Version None)
Quarter: 2005Q4

REPORT INFORMATION
  Report Type: 
  Country: None (occurrence: None)
  Receive Date: 20051018
  Receipt Date: 20050930
  Transmission Date: 20060501
  Serious: Yes (Hospitalization, Disabling)
  Sender: FDA-Public Use
  Company Number: GBR-2005-0001858

PATIENT
  Age: 50 Year
  Sex: Male

DRUGS (3)
  1. TRANSTEC 35(BUPRENORPHINE HYDROCHLORIDE) [Suspect]
     Indication: NEURALGIA
     Dosage: 35 MCG, Q1H, TRANSDERMAL
     Route: 062
     Dates: start: 20050801, end: 20050801
  2. GABAPENTIN [Suspect]
     Indication: DIABETIC NEUROPATHY
     Dosage: 1800 MG, DAILY, ORAL
     Route: 048
     Dates: start: 20030101
  3. METFORMIN [Concomitant]

REACTIONS (1)
  - PANIC ATTACK [None]
